FAERS Safety Report 9491189 (Version 1)
Quarter: 2013Q1

REPORT INFORMATION
  Report Type: Not Available
  Country: US (occurrence: US)
  Receive Date: 20120619
  Receipt Date: 20120619
  Transmission Date: 20140127
  Serious: Yes (Other)
  Sender: FDA-Public Use
  Company Number: US-LUNDBECK-DKLU1077313

PATIENT
  Age: 0 None
  Sex: Male

DRUGS (4)
  1. SABRIL (FOR ORAL SOLUTION) [Suspect]
     Indication: INFANTILE SPASMS
     Route: 048
     Dates: start: 20111214
  2. SABRIL (FOR ORAL SOLUTION) [Suspect]
     Route: 048
     Dates: start: 20120229
  3. TOPAMAX [Concomitant]
     Indication: CONVULSION
  4. PHENOBARBITAL [Concomitant]
     Indication: CONVULSION

REACTIONS (1)
  - Convulsion [Unknown]
